FAERS Safety Report 7790943-3 (Version None)
Quarter: 2011Q3

REPORT INFORMATION
  Report Type: 
  Country: None (occurrence: None)
  Receive Date: 20110930
  Receipt Date: 20110930
  Transmission Date: 20111222
  Serious: Yes (Other)
  Sender: FDA-Public Use
  Company Number: None

PATIENT
  Age: 50 Year
  Sex: Female
  Weight: 77.11 kg

DRUGS (1)
  1. PRISTIQ [Suspect]
     Indication: ANXIETY
     Dosage: 50MG
     Route: 048
     Dates: start: 20100919, end: 20110920

REACTIONS (4)
  - DRUG WITHDRAWAL SYNDROME [None]
  - NAUSEA [None]
  - IMPAIRED WORK ABILITY [None]
  - DIZZINESS [None]
